FAERS Safety Report 6628535-1 (Version None)
Quarter: 2010Q1

REPORT INFORMATION
  Report Type: 
  Country: None (occurrence: None)
  Receive Date: 20100311
  Receipt Date: 20100304
  Transmission Date: 20100710
  Serious: Yes (Other)
  Sender: FDA-Public Use
  Company Number: US-JNJFOC-20091201197

PATIENT
  Sex: Male
  Weight: 68.04 kg

DRUGS (3)
  1. FENTANYL-100 [Suspect]
     Indication: NECK PAIN
     Route: 062
     Dates: start: 20090101
  2. FENTANYL-100 [Suspect]
     Indication: PAIN
     Route: 062
     Dates: start: 20090101
  3. FENTANYL CITRATE [Suspect]
     Indication: PAIN
     Route: 062

REACTIONS (7)
  - CONSTIPATION [None]
  - DECREASED APPETITE [None]
  - DRUG DEPENDENCE [None]
  - MOOD SWINGS [None]
  - PYREXIA [None]
  - WITHDRAWAL SYNDROME [None]
  - WRONG TECHNIQUE IN DRUG USAGE PROCESS [None]
